FAERS Safety Report 16036358 (Version 1)
Quarter: 2019Q1

REPORT INFORMATION
  Report Type: Spontaneous
  Country: US (occurrence: US)
  Receive Date: 20190305
  Receipt Date: 20190305
  Transmission Date: 20190418
  Serious: No
  Sender: FDA-Public Use
  Company Number: US-ALLERGAN-1842208US

PATIENT
  Sex: Female
  Weight: 96.15 kg

DRUGS (1)
  1. ESTRACE [Suspect]
     Active Substance: ESTRADIOL
     Indication: VULVOVAGINAL DRYNESS
     Dosage: COUPLE TIMES A WEEK
     Route: 067
     Dates: end: 201808

REACTIONS (7)
  - Pruritus [Recovered/Resolved]
  - Weight increased [Unknown]
  - Increased appetite [Unknown]
  - Abnormal sensation in eye [Unknown]
  - Eyelid disorder [Not Recovered/Not Resolved]
  - Dry eye [Unknown]
  - Cyst [Unknown]
